FAERS Safety Report 6856002-9 (Version None)
Quarter: 2010Q3

REPORT INFORMATION
  Report Type: 
  Country: None (occurrence: None)
  Receive Date: 20100716
  Receipt Date: 20100716
  Transmission Date: 20110219
  Serious: No
  Sender: FDA-Public Use
  Company Number: None

PATIENT
  Age: 73 Year
  Sex: Female
  Weight: 39.9165 kg

DRUGS (3)
  1. DIFLUCAN [Suspect]
     Indication: VULVOVAGINAL MYCOTIC INFECTION
     Dosage: 150 MG ONCE PO
     Route: 048
     Dates: start: 20100427
  2. CLOTRIMAZOLE [Suspect]
     Dosage: 30 GM 2X/DAY UP TO 2 WKS TOPICAL
     Route: 061
     Dates: start: 20100427
  3. CLOTRIMAZOLE [Suspect]
     Dosage: 30 GM 2X/DAY UP TO 2 WKS TOPICAL
     Route: 061
     Dates: start: 20100429

REACTIONS (1)
  - DERMATITIS ACNEIFORM [None]
